FAERS Safety Report 10417595 (Version 4)
Quarter: 2015Q1

REPORT INFORMATION
  Report Type: Spontaneous
  Country: JP (occurrence: JP)
  Receive Date: 20140829
  Receipt Date: 20150115
  Transmission Date: 20150720
  Serious: Yes (Death, Life-Threatening, Hospitalization, Other)
  Sender: FDA-Public Use
  Company Number: JP-009507513-1408JPN016168

PATIENT
  Age: 70 Year
  Sex: Male
  Weight: 40 kg

DRUGS (10)
  1. TEMODAL [Suspect]
     Active Substance: TEMOZOLOMIDE
     Dosage: 150 MG/M2, QD
     Route: 048
     Dates: start: 20140228, end: 20140304
  2. TEMODAL [Suspect]
     Active Substance: TEMOZOLOMIDE
     Dosage: 150 MG/M2, QD
     Route: 048
     Dates: start: 20140328, end: 20140401
  3. RINDERON V [Suspect]
     Active Substance: BETAMETHASONE VALERATE
     Indication: CEREBRAL OEDEMA MANAGEMENT
     Dosage: 1.5 MG, QD
     Route: 048
     Dates: start: 201311, end: 201405
  4. AVASTIN [Concomitant]
     Active Substance: BEVACIZUMAB
     Indication: GLIOBLASTOMA MULTIFORME
     Dosage: 10 MG, QOW
     Route: 042
     Dates: start: 201311
  5. ISCOTIN [Concomitant]
     Active Substance: ISONIAZID
     Indication: PULMONARY TUBERCULOSIS
     Dosage: DAILY DOSAGE UNKNOWN
     Route: 048
     Dates: start: 20140508
  6. RIFADIN [Concomitant]
     Active Substance: RIFAMPIN
     Indication: PULMONARY TUBERCULOSIS
     Dosage: DAILY DOSAGE UNKNOWN
     Route: 048
     Dates: start: 20140508
  7. BAKTAR [Concomitant]
     Active Substance: SULFAMETHOXAZOLE\TRIMETHOPRIM
     Indication: ANTIFUNGAL PROPHYLAXIS
     Dosage: DAILY DOSE UNKNOWN
     Route: 048
     Dates: start: 201311, end: 201405
  8. TEMODAL [Suspect]
     Active Substance: TEMOZOLOMIDE
     Indication: GLIOBLASTOMA MULTIFORME
     Dosage: 75 MG/M2, QD
     Route: 048
     Dates: start: 20131105
  9. BAKTAR [Concomitant]
     Active Substance: SULFAMETHOXAZOLE\TRIMETHOPRIM
     Dosage: DAILY DOSE UNKNOWN (INCREASE)
     Route: 048
     Dates: start: 20140506
  10. TEMODAL [Suspect]
     Active Substance: TEMOZOLOMIDE
     Dosage: 150 MG/M2, QD
     Route: 048
     Dates: start: 20140131, end: 20140204

REACTIONS (5)
  - Bone marrow failure [Unknown]
  - Sepsis [Fatal]
  - Lymphocyte count decreased [Unknown]
  - Platelet count decreased [Not Recovered/Not Resolved]
  - Pulmonary tuberculosis [Fatal]

NARRATIVE: CASE EVENT DATE: 20140411
